FAERS Safety Report 9170557 (Version 1)
Quarter: 2013Q1

REPORT INFORMATION
  Report Type: Spontaneous
  Country: US (occurrence: None)
  Receive Date: 20130308
  Receipt Date: 20130308
  Transmission Date: 20140127
  Serious: Yes (Other)
  Sender: FDA-Public Use
  Company Number: 001487237A

PATIENT
  Age: 53 Year
  Sex: Female

DRUGS (9)
  1. VITAMIN [Suspect]
     Dates: start: 20130105, end: 20130210
  2. HYDRALAZINE [Concomitant]
  3. ISOSORBIDE [Concomitant]
  4. DILTIAZEM [Concomitant]
  5. DIOVAN [Concomitant]
  6. DILANTIN [Concomitant]
  7. PHENOBARBITAL [Concomitant]
  8. ATIVAN [Concomitant]
  9. LO-DOSE ASPIRIN [Concomitant]

REACTIONS (3)
  - Palpitations [None]
  - Blood pressure increased [None]
  - Heart rate increased [None]
